FAERS Safety Report 5594041-9 (Version None)
Quarter: 2008Q1

REPORT INFORMATION
  Report Type: 
  Country: None (occurrence: None)
  Receive Date: 20080116
  Receipt Date: 20080110
  Transmission Date: 20080703
  Serious: Yes (Life-Threatening, Hospitalization)
  Sender: FDA-Public Use
  Company Number: GB-MERCK-0801GBR00041

PATIENT
  Sex: Male

DRUGS (2)
  1. JANUVIA [Suspect]
     Indication: TYPE 2 DIABETES MELLITUS
     Route: 048
     Dates: start: 20070101, end: 20071201
  2. METFORMIN [Concomitant]
     Route: 065

REACTIONS (1)
  - DIABETIC KETOACIDOSIS [None]
